FAERS Safety Report 20224041 (Version 1)
Quarter: 2021Q4

REPORT INFORMATION
  Report Type: Spontaneous
  Country: DE (occurrence: DE)
  Receive Date: 20211223
  Receipt Date: 20211223
  Transmission Date: 20220303
  Serious: Yes (Hospitalization)
  Sender: FDA-Public Use
  Company Number: DE-ADRED-05755-01

PATIENT
  Age: 78 Year
  Sex: Female
  Weight: 67.3 kg

DRUGS (3)
  1. PHENPROCOUMON [Interacting]
     Active Substance: PHENPROCOUMON
     Dosage: 3 MG, ACCORDING TO INR, TABLETS,ADDITIONAL INFORMATION:MEDICATION ERRORS
     Route: 048
  2. CLINDAMYCIN [Interacting]
     Active Substance: CLINDAMYCIN
     Dosage: 900 MILLIGRAM DAILY;  1-1-1-0,ADDITIONAL INFORMATION:MEDICATION ERRORS
     Route: 048
  3. BISOPROLOL [Concomitant]
     Active Substance: BISOPROLOL
     Dosage: 5 MG, 1-0-0.5-0
     Route: 048

REACTIONS (4)
  - Labelled drug-drug interaction medication error [Unknown]
  - International normalised ratio abnormal [Recovering/Resolving]
  - Labelled drug-drug interaction medication error [Unknown]
  - Product prescribing error [Unknown]

NARRATIVE: CASE EVENT DATE: 20200526
